FAERS Safety Report 5128681-8 (Version None)
Quarter: 2006Q4

REPORT INFORMATION
  Report Type: 
  Country: None (occurrence: None)
  Receive Date: 20061011
  Receipt Date: 20060930
  Transmission Date: 20070319
  Serious: Yes (Other)
  Sender: FDA-Public Use
  Company Number: 2006119507

PATIENT
  Sex: Female

DRUGS (10)
  1. LIPITOR [Suspect]
     Indication: BLOOD CHOLESTEROL INCREASED
  2. PREGABALIN (PREGABALIN) [Suspect]
     Indication: PAIN
     Dosage: 75 MG (75 MG, 1 IN 1 D), ORAL
     Route: 048
     Dates: end: 20060917
  3. STATINS (HMG COA REDUCTASE INHIBITORS) [Suspect]
     Indication: BLOOD CHOLESTEROL INCREASED
  4. ZETIA [Suspect]
     Indication: BLOOD CHOLESTEROL INCREASED
  5. ZOCOR [Suspect]
     Indication: BLOOD CHOLESTEROL INCREASED
  6. PRINIVIL [Concomitant]
  7. SYNTHROID [Concomitant]
  8. PANCREASE (PANCRELIPASE) [Concomitant]
  9. LANTUS [Concomitant]
  10. NOVOLOG [Concomitant]

REACTIONS (11)
  - BASAL CELL CARCINOMA [None]
  - BLINDNESS UNILATERAL [None]
  - CATARACT [None]
  - DIZZINESS [None]
  - EYE DISORDER [None]
  - FIBROMYALGIA [None]
  - HYPERTENSION [None]
  - MALIGNANT MELANOMA [None]
  - MYALGIA [None]
  - OPTIC ISCHAEMIC NEUROPATHY [None]
  - READING DISORDER [None]
